FAERS Safety Report 4325372-8 (Version None)
Quarter: 2004Q1

REPORT INFORMATION
  Report Type: 
  Country: None (occurrence: None)
  Receive Date: 20040324
  Receipt Date: 20040312
  Transmission Date: 20041129
  Serious: Yes (Death)
  Sender: FDA-Public Use
  Company Number: US-JNJFOC-20040303325

PATIENT
  Age: 69 Year
  Sex: Male

DRUGS (9)
  1. INFLIXIMAB (INFLIXIMAB, RECOMBINANT) LYOPHILIZED POWDER [Suspect]
     Indication: RHEUMATOID ARTHRITIS
     Dosage: INTRAVENOUS
     Route: 042
     Dates: start: 20020411, end: 20020411
  2. INFLIXIMAB (INFLIXIMAB, RECOMBINANT) LYOPHILIZED POWDER [Suspect]
     Indication: RHEUMATOID ARTHRITIS
     Dosage: INTRAVENOUS
     Route: 042
     Dates: start: 20010201
  3. ULTRACET [Concomitant]
  4. INHALERS (ANTI-ASTHMATICS) [Concomitant]
  5. CALCIUM (CALCIUM) [Concomitant]
  6. METHOTREXATE [Concomitant]
  7. FOLIC ACID [Concomitant]
  8. LOVASTATIN [Concomitant]
  9. MULTIVITAMIN [Concomitant]

REACTIONS (1)
  - LUNG NEOPLASM MALIGNANT [None]
